FAERS Safety Report 17891206 (Version 1)
Quarter: 2020Q2

REPORT INFORMATION
  Report Type: Spontaneous
  Country: US (occurrence: US)
  Receive Date: 20200612
  Receipt Date: 20200612
  Transmission Date: 20200714
  Serious: No
  Sender: FDA-Public Use
  Company Number: US-PERRIGO-20US001697

PATIENT
  Age: 44 Year
  Sex: Male
  Weight: 78.01 kg

DRUGS (1)
  1. MINOXIDIL. [Suspect]
     Active Substance: MINOXIDIL
     Indication: ALOPECIA
     Dosage: UNKNOWN, QD
     Route: 061
     Dates: start: 201911, end: 20200127

REACTIONS (6)
  - Application site scab [Recovering/Resolving]
  - Application site irritation [Recovering/Resolving]
  - Application site pruritus [Recovering/Resolving]
  - Inappropriate schedule of product administration [Recovered/Resolved]
  - Application site erythema [Recovering/Resolving]
  - Dandruff [Recovering/Resolving]

NARRATIVE: CASE EVENT DATE: 201911
